FAERS Safety Report 22321328 (Version 3)
Quarter: 2023Q4

REPORT INFORMATION
  Report Type: Spontaneous
  Country: FR (occurrence: FR)
  Receive Date: 20230515
  Receipt Date: 20231103
  Transmission Date: 20240110
  Serious: Yes (Other)
  Sender: FDA-Public Use
  Company Number: None

PATIENT
  Age: 40 Year
  Sex: Female
  Weight: 74 kg

DRUGS (1)
  1. PEMBROLIZUMAB [Suspect]
     Active Substance: PEMBROLIZUMAB
     Indication: Breast cancer
     Dosage: 200 MG/ EVERY 3 WEEKS
     Route: 042
     Dates: start: 20220527

REACTIONS (1)
  - Troponin increased [Recovered/Resolved]

NARRATIVE: CASE EVENT DATE: 20230105
